FAERS Safety Report 6032186-X (Version None)
Quarter: 2009Q1

REPORT INFORMATION
  Report Type: 
  Country: None (occurrence: None)
  Receive Date: 20090108
  Receipt Date: 20090107
  Transmission Date: 20090719
  Serious: Yes (Hospitalization)
  Sender: FDA-Public Use
  Company Number: DE-ABBOTT-08P-062-0487850-00

PATIENT
  Sex: Male

DRUGS (4)
  1. HUMIRA [Suspect]
     Indication: ANKYLOSING SPONDYLITIS
     Route: 058
     Dates: start: 20070205
  2. AZATHIOPRINE [Concomitant]
     Indication: ANKYLOSING SPONDYLITIS
  3. NEBIVOLOL [Concomitant]
     Indication: HYPERTENSION
     Route: 048
  4. CARBAMAZEPINE [Concomitant]
     Indication: EPILEPSY
     Route: 048

REACTIONS (1)
  - CEREBROVASCULAR ACCIDENT [None]
